FAERS Safety Report 5444478-3 (Version None)
Quarter: 2007Q3

REPORT INFORMATION
  Report Type: 
  Country: None (occurrence: None)
  Receive Date: 20070831
  Receipt Date: 20070824
  Transmission Date: 20080115
  Serious: Yes (Other)
  Sender: FDA-Public Use
  Company Number: 2007329619

PATIENT
  Age: 14 Month
  Sex: Male

DRUGS (2)
  1. BENADRYL [Suspect]
     Indication: HYPERSENSITIVITY
     Dosage: 1 TEASPOON ONCE, ORAL
     Route: 048
     Dates: start: 20070819, end: 20070819
  2. ACETAMINOPHEN [Concomitant]

REACTIONS (1)
  - FEBRILE CONVULSION [None]
